FAERS Safety Report 4296379-4 (Version None)
Quarter: 2004Q1

REPORT INFORMATION
  Report Type: 
  Country: None (occurrence: None)
  Receive Date: 20040213
  Receipt Date: 20040213
  Transmission Date: 20041129
  Serious: Yes (Hospitalization)
  Sender: FDA-Public Use
  Company Number: None

PATIENT
  Sex: Male
  Weight: 116.1208 kg

DRUGS (6)
  1. TRIMOX [Suspect]
     Indication: INFECTION
     Dosage: PO
     Route: 048
     Dates: start: 20030910
  2. SYNTHROID [Concomitant]
  3. TOPROL-XL [Concomitant]
  4. ASPIRIN [Concomitant]
  5. PRAVACHOL [Concomitant]
  6. MULTIVITAMIN [Concomitant]

REACTIONS (1)
  - RASH [None]
